FAERS Safety Report 5479434-2 (Version None)
Quarter: 2007Q4

REPORT INFORMATION
  Report Type: 
  Country: None (occurrence: None)
  Receive Date: 20071008
  Receipt Date: 20070926
  Transmission Date: 20080405
  Serious: Yes (Hospitalization, Other)
  Sender: FDA-Public Use
  Company Number: US-ELI_LILLY_AND_COMPANY-US200708003575

PATIENT
  Age: 77 Year
  Sex: Female

DRUGS (23)
  1. METOPROLOL TARTRATE [Concomitant]
     Dosage: 25 MG, 2/D
  2. SPIRIVA [Concomitant]
     Dosage: UNK, DAILY (1/D)
  3. ATIVAN [Concomitant]
     Dosage: 0.5 MG, AS NEEDED
  4. SYNTHROID [Concomitant]
     Dosage: 75 UG, DAILY (1/D)
  5. AMMONIUM LACTATE [Concomitant]
     Dosage: 12 %, AS NEEDED
  6. FORTEO [Suspect]
     Indication: OSTEOPOROSIS
     Dosage: 20 UG, DAILY (1/D)
     Route: 058
     Dates: start: 20070101
  7. ENALAPRIL MALEATE [Concomitant]
     Indication: BLOOD PRESSURE
     Dosage: 2.5 MG, DAILY (1/D)
  8. LASIX [Concomitant]
     Indication: CARDIAC FAILURE CONGESTIVE
     Dosage: 40 MG, DAILY (1/D)
     Dates: start: 20061101
  9. LASIX [Concomitant]
     Dosage: 80 MG, AS NEEDED
  10. POTASSIUM CHLORIDE [Concomitant]
     Dosage: 20 MEQ, DAILY (1/D)
  11. POTASSIUM CHLORIDE [Concomitant]
     Dosage: 40 MEQ, AS NEEDED
  12. PREVACID [Concomitant]
     Dosage: 30 MG, DAILY (1/D)
  13. REGLAN [Concomitant]
     Dosage: 10 MG, 4/D
  14. ZOCOR [Concomitant]
     Dosage: 80 MG, EACH EVENING
  15. OXYCONTIN [Concomitant]
     Indication: PAIN
     Dosage: 20 MG, 2/D AS NEEDED
  16. FLEXERIL [Concomitant]
     Dosage: 10 MG, 3/D AS NEEDED
  17. ASPIRIN [Concomitant]
     Dosage: 81 MG, DAILY (1/D)
  18. FORADIL [Concomitant]
     Dosage: UNK, 2/D
     Route: 055
  19. VICODIN [Concomitant]
     Dosage: UNK, 2/D AS NEEDED
  20. MAGNESIUM SULFATE [Concomitant]
     Dosage: 500 MG, 2/D
  21. CALCIUM [Concomitant]
     Dosage: 1000 MG, DAILY (1/D)
  22. CRANBERRY [Concomitant]
     Indication: URINARY TRACT INFECTION
     Dosage: 1200 MG, 4/D
  23. ASCORBIC ACID [Concomitant]
     Dosage: 500 MG, 2/D

REACTIONS (6)
  - CARDIAC FAILURE CONGESTIVE [None]
  - CHEST DISCOMFORT [None]
  - DECREASED ACTIVITY [None]
  - FALL [None]
  - PNEUMONIA [None]
  - URINARY TRACT INFECTION [None]
